FAERS Safety Report 15684022 (Version 1)
Quarter: 2018Q4

REPORT INFORMATION
  Report Type: Report from Study
  Country: BR (occurrence: BR)
  Receive Date: 20181204
  Receipt Date: 20181204
  Transmission Date: 20190205
  Serious: Yes (Hospitalization)
  Sender: FDA-Public Use
  Company Number: BR-UCBSA-2018052287

PATIENT
  Age: 45 Year
  Sex: Female
  Weight: 74 kg

DRUGS (1)
  1. LEVETIRACETAM. [Suspect]
     Active Substance: LEVETIRACETAM
     Indication: EPILEPSY
     Dosage: 250 MG 2 TAB IN MORNING AND 3 TAB IN THE EVENING, 2X/DAY (BID)
     Route: 048
     Dates: start: 201806

REACTIONS (5)
  - Dizziness [Not Recovered/Not Resolved]
  - Off label use [Unknown]
  - Tremor [Not Recovered/Not Resolved]
  - Decreased immune responsiveness [Recovered/Resolved]
  - Nervousness [Not Recovered/Not Resolved]

NARRATIVE: CASE EVENT DATE: 201806
